FAERS Safety Report 7818988-5 (Version None)
Quarter: 2011Q4

REPORT INFORMATION
  Report Type: 
  Country: None (occurrence: None)
  Receive Date: 20111018
  Receipt Date: 20111006
  Transmission Date: 20120403
  Serious: Yes (Death, Life-Threatening, Hospitalization)
  Sender: FDA-Public Use
  Company Number: US-JNJFOC-20110611913

PATIENT
  Sex: Female
  Weight: 76.2 kg

DRUGS (41)
  1. ADVAIR DISKUS 100/50 [Concomitant]
     Route: 055
     Dates: start: 20070820
  2. LOMOTIL [Concomitant]
     Indication: DIARRHOEA
     Route: 048
     Dates: start: 20100222
  3. BACTRIM [Concomitant]
     Route: 048
     Dates: start: 20090918
  4. ALLEGRA [Concomitant]
     Route: 048
     Dates: start: 20110722
  5. ULTRACET [Concomitant]
  6. ETRAVIRINE [Suspect]
     Indication: HIV INFECTION
     Route: 048
     Dates: start: 20110329, end: 20110531
  7. TRUVADA [Concomitant]
     Indication: HIV INFECTION
     Route: 048
     Dates: start: 20110329, end: 20110531
  8. TRUVADA [Concomitant]
     Route: 048
     Dates: start: 20090922
  9. METHADONE HCL [Concomitant]
     Dates: start: 20110805
  10. DIOVAN HCT [Concomitant]
     Route: 048
     Dates: start: 20110805
  11. POTASSIUM CHLORIDE [Concomitant]
     Route: 048
     Dates: start: 20091123
  12. LAC-HYDRIN [Concomitant]
     Indication: DRY SKIN
     Route: 061
     Dates: start: 20110617
  13. ZITHROMAX [Concomitant]
     Dates: start: 20101123
  14. DARUNAVIR ETHANOLATE [Suspect]
     Route: 048
     Dates: start: 20110816, end: 20110904
  15. ABACAVIR [Suspect]
     Indication: HIV INFECTION
     Dates: start: 20110816
  16. RITONAVIR [Concomitant]
     Route: 048
     Dates: start: 20110329, end: 20110531
  17. RALTEGRAVIR [Concomitant]
     Route: 048
     Dates: start: 20110816, end: 20110904
  18. METHADONE HCL [Concomitant]
     Dates: start: 20090818
  19. WESTCORT [Concomitant]
     Route: 061
     Dates: start: 20110617
  20. LIPITOR [Concomitant]
     Route: 048
     Dates: start: 20110826
  21. DARUNAVIR ETHANOLATE [Suspect]
     Indication: HIV INFECTION
     Route: 048
     Dates: start: 20110329, end: 20110531
  22. RITONAVIR [Concomitant]
     Indication: HIV INFECTION
     Route: 048
     Dates: start: 20110816, end: 20110904
  23. STROVITE FORTE [Concomitant]
     Route: 048
     Dates: start: 20030821
  24. DIOVAN HCT [Concomitant]
     Route: 048
     Dates: start: 20090922
  25. AMBIEN [Concomitant]
     Route: 048
     Dates: start: 20091020
  26. LAMIVUDINE [Concomitant]
     Indication: HIV INFECTION
     Route: 048
     Dates: start: 20110816
  27. MULTI-VITAMINS [Concomitant]
  28. ADVAIR DISKUS 100/50 [Concomitant]
     Route: 055
     Dates: start: 20091002
  29. VALTREX [Concomitant]
     Route: 048
     Dates: start: 20091019
  30. NORVASC [Concomitant]
     Route: 048
     Dates: start: 20100921
  31. PROMETHAZINE W/ CODEINE [Concomitant]
     Indication: COUGH
  32. RALTEGRAVIR [Concomitant]
     Indication: HIV INFECTION
     Route: 048
     Dates: start: 20110329, end: 20110531
  33. SEROQUEL [Concomitant]
     Dates: start: 20110311
  34. IBUPROFEN [Concomitant]
     Route: 048
     Dates: start: 20070611
  35. STROVITE [Concomitant]
     Route: 048
     Dates: start: 20060707
  36. PERCOCET [Concomitant]
     Dates: start: 20101110
  37. METFORMIN HYDROCHLORIDE [Concomitant]
     Route: 048
     Dates: start: 20110502
  38. PROVENTIL [Concomitant]
     Indication: DYSPNOEA
     Route: 055
     Dates: start: 20040224
  39. PROMETHAZINE W/ CODEINE [Concomitant]
     Indication: UPPER RESPIRATORY TRACT INFECTION
  40. LOTRISONE [Concomitant]
     Dates: start: 20110722
  41. VALSARTAN [Concomitant]

REACTIONS (5)
  - HEPATIC FAILURE [None]
  - RENAL FAILURE ACUTE [None]
  - SEPTIC SHOCK [None]
  - UROSEPSIS [None]
  - RASH [None]
